FAERS Safety Report 8311336-6 (Version None)
Quarter: 2012Q2

REPORT INFORMATION
  Report Type: 
  Country: None (occurrence: None)
  Receive Date: 20120425
  Receipt Date: 20120416
  Transmission Date: 20120825
  Serious: Yes (Other)
  Sender: FDA-Public Use
  Company Number: JP-GLAXOSMITHKLINE-B0796982A

PATIENT
  Age: 6 Year
  Sex: Male

DRUGS (1)
  1. ZOVIRAX [Suspect]
     Indication: INFECTION PROPHYLAXIS
     Route: 048

REACTIONS (2)
  - VIRAEMIA [None]
  - INFECTION MASKED [None]
